FAERS Safety Report 7534126-0 (Version None)
Quarter: 2011Q2

REPORT INFORMATION
  Report Type: 
  Country: None (occurrence: None)
  Receive Date: 20110608
  Receipt Date: 20061017
  Transmission Date: 20111010
  Serious: Yes (Death, Hospitalization)
  Sender: FDA-Public Use
  Company Number: PHHO2006CO16506

PATIENT
  Sex: Female

DRUGS (4)
  1. NORVASC [Concomitant]
     Dosage: UNKNOWN
  2. HYDROCHLOROTHIAZIDE [Concomitant]
     Dosage: UNKNOWN
  3. DIOVAN [Suspect]
     Indication: HYPERTENSION
     Dosage: 1 TABLET DAILY
     Route: 048
     Dates: start: 20050101
  4. CARVEDILOL [Concomitant]
     Dosage: UNKNOWN

REACTIONS (2)
  - BREAST CANCER [None]
  - METASTASIS [None]
